FAERS Safety Report 5972668-X (Version None)
Quarter: 2008Q4

REPORT INFORMATION
  Report Type: 
  Country: None (occurrence: None)
  Receive Date: 20081125
  Receipt Date: 20081117
  Transmission Date: 20090506
  Serious: Yes (Death)
  Sender: FDA-Public Use
  Company Number: 2008-186941-NL

PATIENT
  Age: 1 Month
  Sex: Female

DRUGS (4)
  1. VECURONIUM BROMIDE [Suspect]
     Indication: EUTHANASIA
     Route: 042
  2. MIDAZOLAM HCL [Concomitant]
  3. MORPHINE [Concomitant]
  4. THIOPENTAL SODIUM [Concomitant]

REACTIONS (4)
  - CARDIO-RESPIRATORY ARREST [None]
  - EUTHANASIA [None]
  - NECROSIS ISCHAEMIC [None]
  - NERVOUS SYSTEM DISORDER [None]
